FAERS Safety Report 16498124 (Version 1)
Quarter: 2019Q2

REPORT INFORMATION
  Report Type: Report from Study
  Country: EG (occurrence: EG)
  Receive Date: 20190628
  Receipt Date: 20190628
  Transmission Date: 20190711
  Serious: Yes (Other)
  Sender: FDA-Public Use
  Company Number: EG-AGG-06-2019-1964

PATIENT

DRUGS (6)
  1. ASPRIN [Concomitant]
     Active Substance: ASPIRIN
  2. HEPARIN [Concomitant]
     Active Substance: HEPARIN SODIUM
     Dosage: 70-100 IU/KG UNFRACTIONATED HEPARIN IV BOLUS LOADING DOSE
     Route: 040
  3. CLOPIDOGREL [Concomitant]
     Active Substance: CLOPIDOGREL BISULFATE
  4. AGGRASTAT [Suspect]
     Active Substance: TIROFIBAN HYDROCHLORIDE
     Indication: ANTIPLATELET THERAPY
     Dosage: LOADING DOSE
     Route: 040
  5. HEPARIN [Concomitant]
     Active Substance: HEPARIN SODIUM
     Dosage: WEIGHT ADJUSTED UNFRACTIONATED HEPARIN TO ACHIEVE APPROX. 250 SECONDS ACTIVATED CLOTTING TIME (ACT)
     Route: 041
  6. AGGRASTAT [Suspect]
     Active Substance: TIROFIBAN HYDROCHLORIDE
     Indication: ANTIPLATELET THERAPY
     Route: 041

REACTIONS (1)
  - Vascular stent thrombosis [Unknown]
